FAERS Safety Report 7556923-8 (Version None)
Quarter: 2011Q2

REPORT INFORMATION
  Report Type: 
  Country: None (occurrence: None)
  Receive Date: 20110620
  Receipt Date: 20110606
  Transmission Date: 20111010
  Serious: Yes (Other)
  Sender: FDA-Public Use
  Company Number: PHFR2011GB03481

PATIENT
  Age: 61 Year
  Sex: Female

DRUGS (3)
  1. SUNITINIB MALATE [Concomitant]
     Indication: METASTATIC RENAL CELL CARCINOMA
     Dosage: 25 MG, QD
     Route: 065
     Dates: start: 20091201, end: 20101101
  2. ZOLEDRONIC ACID [Suspect]
     Indication: METASTASES TO BONE
     Dosage: 3-4MG
     Route: 042
     Dates: start: 20091101, end: 20101101
  3. SUNITINIB MALATE [Concomitant]
     Dosage: UNK
     Route: 065
     Dates: start: 20110201

REACTIONS (3)
  - OSTEONECROSIS OF JAW [None]
  - GINGIVAL DISORDER [None]
  - RENAL FAILURE [None]
